FAERS Safety Report 11995975 (Version 1)
Quarter: 2016Q1

REPORT INFORMATION
  Report Type: Spontaneous
  Country: IT (occurrence: IT)
  Receive Date: 20160203
  Receipt Date: 20160203
  Transmission Date: 20160526
  Serious: Yes (Hospitalization)
  Sender: FDA-Public Use
  Company Number: IT-SA-2016SA016472

PATIENT
  Sex: Male

DRUGS (4)
  1. LASIX [Concomitant]
     Active Substance: FUROSEMIDE
  2. PLAVIX [Suspect]
     Active Substance: CLOPIDOGREL BISULFATE
     Dosage: DOSE:1 UNIT(S)
     Route: 048
     Dates: start: 20090101, end: 20140801
  3. CARDIOASPIRIN [Suspect]
     Active Substance: ASPIRIN
     Dosage: DOSE:1 UNIT(S)
     Route: 048
     Dates: start: 20090101, end: 20140801
  4. PLAUNAC [Concomitant]
     Active Substance: OLMESARTAN MEDOXOMIL

REACTIONS (2)
  - Duodenal ulcer haemorrhage [Recovered/Resolved]
  - Gastritis erosive [Recovered/Resolved]

NARRATIVE: CASE EVENT DATE: 20140801
